FAERS Safety Report 22116894 (Version 3)
Quarter: 2023Q2

REPORT INFORMATION
  Report Type: Spontaneous
  Country: US (occurrence: US)
  Receive Date: 20230320
  Receipt Date: 20230414
  Transmission Date: 20230721
  Serious: Yes (Other)
  Sender: FDA-Public Use
  Company Number: US-SA-SAC20230317000605

PATIENT
  Age: 66 Year
  Sex: Male

DRUGS (1)
  1. DUPIXENT [Suspect]
     Active Substance: DUPILUMAB
     Dosage: 300MG, (FREQUENCY: OTHER)
     Route: 058
     Dates: start: 202301

REACTIONS (14)
  - Staphylococcal infection [Unknown]
  - Diarrhoea [Unknown]
  - Skin exfoliation [Unknown]
  - Micturition disorder [Unknown]
  - Skin ulcer [Unknown]
  - Condition aggravated [Unknown]
  - Incontinence [Unknown]
  - Oedema peripheral [Unknown]
  - Skin abrasion [Unknown]
  - Eye pruritus [Unknown]
  - Dry eye [Unknown]
  - Eczema [Unknown]
  - Dermatitis [Unknown]
  - Drug ineffective [Unknown]

NARRATIVE: CASE EVENT DATE: 20230101
